FAERS Safety Report 13784140 (Version 1)
Quarter: 2017Q3

REPORT INFORMATION
  Report Type: Report from Study
  Country: US (occurrence: US)
  Receive Date: 20170724
  Receipt Date: 20170724
  Transmission Date: 20171127
  Serious: Yes (Hospitalization)
  Sender: FDA-Public Use
  Company Number: US-ACTELION-A-US2017-149959

PATIENT
  Age: 51 Year
  Sex: Female
  Weight: 92.52 kg

DRUGS (6)
  1. ADCIRCA [Concomitant]
     Active Substance: TADALAFIL
  2. SILDENAFIL. [Concomitant]
     Active Substance: SILDENAFIL
  3. ORENITRAM [Concomitant]
     Active Substance: TREPROSTINIL
  4. TYVASO [Concomitant]
     Active Substance: TREPROSTINIL
  5. TRACLEER [Suspect]
     Active Substance: BOSENTAN
     Indication: PULMONARY HYPERTENSION
     Dosage: 125 MG, BID
     Route: 048
  6. AMLODIPINE [Concomitant]
     Active Substance: AMLODIPINE BESYLATE

REACTIONS (5)
  - Fluid overload [Unknown]
  - Drug administration error [Unknown]
  - Fluid retention [Unknown]
  - Syncope [Unknown]
  - Dyspnoea [Unknown]
